FAERS Safety Report 10855058 (Version 1)
Quarter: 2015Q1

REPORT INFORMATION
  Report Type: Spontaneous
  Country: US (occurrence: None)
  Receive Date: 20150218
  Receipt Date: 20150218
  Transmission Date: 20150721
  Serious: Yes (Disabling)
  Sender: FDA-Public Use
  Company Number: None

PATIENT
  Age: 61 Year
  Sex: Female
  Weight: 70.76 kg

DRUGS (1)
  1. CIPROFLOXACIN. [Suspect]
     Active Substance: CIPROFLOXACIN
     Indication: URINARY TRACT INFECTION
     Route: 048
     Dates: start: 20150204, end: 20150211

REACTIONS (11)
  - Myalgia [None]
  - Dizziness [None]
  - Impaired driving ability [None]
  - Visual impairment [None]
  - Paraesthesia [None]
  - Feeling cold [None]
  - Arthropathy [None]
  - Arthralgia [None]
  - Economic problem [None]
  - Impaired work ability [None]
  - Depressed level of consciousness [None]

NARRATIVE: CASE EVENT DATE: 20150204
